FAERS Safety Report 23747786 (Version 1)
Quarter: 2024Q2

REPORT INFORMATION
  Report Type: Spontaneous
  Country: US (occurrence: US)
  Receive Date: 20240416
  Receipt Date: 20240416
  Transmission Date: 20240716
  Serious: No
  Sender: FDA-Public Use
  Company Number: US-PERRIGO-23US014109

PATIENT
  Age: 84 Year
  Sex: Female
  Weight: 61.224 kg

DRUGS (12)
  1. MICONAZOLE 3 COMBINATION PACK [Suspect]
     Active Substance: MICONAZOLE NITRATE
     Indication: Vulvovaginal pruritus
     Dosage: 200 MG, QHS
     Route: 067
     Dates: start: 20231208, end: 20231210
  2. MICONAZOLE 3 COMBINATION PACK [Suspect]
     Active Substance: MICONAZOLE NITRATE
     Indication: Vulvovaginal mycotic infection
  3. MICONAZOLE 3 COMBINATION PACK [Suspect]
     Active Substance: MICONAZOLE NITRATE
     Indication: Vulvovaginal pruritus
     Dosage: UNKNOWN, BID
     Route: 061
     Dates: start: 20231208
  4. MICONAZOLE 3 COMBINATION PACK [Suspect]
     Active Substance: MICONAZOLE NITRATE
     Indication: Vulvovaginal mycotic infection
  5. HYDRALAZINE [Concomitant]
     Active Substance: HYDRALAZINE HYDROCHLORIDE
     Indication: Hypertension
     Dosage: UNK
     Route: 065
     Dates: start: 2018
  6. VITAMIN D3 [Concomitant]
     Active Substance: CHOLECALCIFEROL
     Indication: Supplementation therapy
     Dosage: 50 UNITS, UNK
     Route: 065
     Dates: start: 2018
  7. TRAVATAN Z [Concomitant]
     Active Substance: TRAVOPROST
     Indication: Glaucoma
     Dosage: UNK
     Route: 065
     Dates: start: 2018
  8. TRAVATAN Z [Concomitant]
     Active Substance: TRAVOPROST
     Indication: Intraocular pressure increased
  9. LOSARTAN [Concomitant]
     Active Substance: LOSARTAN
     Indication: Hypertension
     Dosage: 50 MG, BID
     Route: 065
     Dates: start: 2023
  10. LOSARTAN [Concomitant]
     Active Substance: LOSARTAN
     Dosage: 100 MG, QAM
     Route: 065
     Dates: start: 2018, end: 2023
  11. METOPROLOL ACTAVIS [METOPROLOL SUCCINATE] [Concomitant]
     Indication: Hypertension
     Dosage: 25 MG, QAM
     Route: 065
     Dates: start: 2023
  12. METOPROLOL ACTAVIS [METOPROLOL SUCCINATE] [Concomitant]
     Dosage: 50 MG, BID
     Route: 065
     Dates: start: 2018, end: 2023

REACTIONS (3)
  - Vulvovaginal pain [Recovered/Resolved]
  - Vulvovaginal pruritus [Recovering/Resolving]
  - Vulvovaginal burning sensation [Recovered/Resolved]

NARRATIVE: CASE EVENT DATE: 20231208
